FAERS Safety Report 9589716 (Version 1)
Quarter: 2013Q4

REPORT INFORMATION
  Report Type: Spontaneous
  Country: US (occurrence: US)
  Receive Date: 20131003
  Receipt Date: 20131003
  Transmission Date: 20140711
  Serious: No
  Sender: FDA-Public Use
  Company Number: US-AMGEN-USASP2012072154

PATIENT
  Age: 55 Year
  Sex: Male

DRUGS (8)
  1. ENBREL [Suspect]
     Indication: PRODUCT USED FOR UNKNOWN INDICATION
     Dosage: 50 MG, QWK
     Route: 058
  2. METHOTREXATE [Concomitant]
     Dosage: 2.5 MG, UNK
  3. NEXIUM                             /01479302/ [Concomitant]
     Dosage: 40 MG, UNK
  4. PROVIGIL [Concomitant]
     Dosage: 100 MG, UNK
  5. FOLIC ACID [Concomitant]
  6. IRON [Concomitant]
     Dosage: 25 MG, UNK
  7. TAMSULOSIN [Concomitant]
     Dosage: 0.4 MG, UNK
  8. HUMIRA [Concomitant]

REACTIONS (1)
  - Drug ineffective [Unknown]
